FAERS Safety Report 7726779-9 (Version None)
Quarter: 2011Q3

REPORT INFORMATION
  Report Type: 
  Country: None (occurrence: None)
  Receive Date: 20110902
  Receipt Date: 20110829
  Transmission Date: 20111222
  Serious: Yes (Hospitalization)
  Sender: FDA-Public Use
  Company Number: US-GLAXOSMITHKLINE-A0942227A

PATIENT
  Age: 56 Year
  Sex: Female
  Weight: 70.5 kg

DRUGS (3)
  1. DOCETAXEL [Suspect]
     Indication: BREAST CANCER
     Dosage: 75MGM2 WEEKLY
     Route: 042
     Dates: start: 20110321, end: 20110705
  2. LAPATINIB [Suspect]
     Indication: BREAST CANCER
     Dosage: 750MG PER DAY
     Route: 048
     Dates: start: 20110321, end: 20110801
  3. CARBOPLATIN [Suspect]
     Indication: BREAST CANCER
     Route: 042
     Dates: start: 20110321, end: 20110705

REACTIONS (2)
  - URINARY TRACT INFECTION [None]
  - HYPOTENSION [None]
